FAERS Safety Report 9172204 (Version 1)
Quarter: 2013Q1

REPORT INFORMATION
  Report Type: Spontaneous
  Country: US (occurrence: US)
  Receive Date: 20130319
  Receipt Date: 20130319
  Transmission Date: 20140127
  Serious: No
  Sender: FDA-Public Use
  Company Number: US-ASTRAZENECA-2013SE10374

PATIENT
  Age: 34 Year
  Sex: Male
  Weight: 186 kg

DRUGS (3)
  1. PRILOSEC [Suspect]
     Indication: GASTROOESOPHAGEAL REFLUX DISEASE
     Route: 048
     Dates: start: 2009, end: 20121001
  2. PRILOSEC [Suspect]
     Indication: GASTROOESOPHAGEAL REFLUX DISEASE
     Dosage: GENERIC
     Route: 048
  3. XANAX [Concomitant]

REACTIONS (7)
  - Gastrooesophageal reflux disease [Unknown]
  - Hiatus hernia [Unknown]
  - Regurgitation [Unknown]
  - Weight decreased [Unknown]
  - Dyspepsia [Unknown]
  - Burning sensation [Unknown]
  - Hypoaesthesia [Unknown]
